FAERS Safety Report 6341901-7 (Version None)
Quarter: 2009Q3

REPORT INFORMATION
  Report Type: 
  Country: None (occurrence: None)
  Receive Date: 20090904
  Receipt Date: 20090827
  Transmission Date: 20100115
  Serious: Yes (Death, Hospitalization)
  Sender: FDA-Public Use
  Company Number: IN-BAXTER-2009BH013504

PATIENT
  Age: 64 Year
  Sex: Male

DRUGS (1)
  1. DIANEAL [Suspect]
     Indication: PERITONEAL DIALYSIS
     Route: 033
     Dates: start: 20090730, end: 20090901

REACTIONS (3)
  - MYOCARDIAL INFARCTION [None]
  - PERITONEAL DIALYSIS COMPLICATION [None]
  - PERITONITIS [None]
